FAERS Safety Report 18161083 (Version 1)
Quarter: 2020Q3

REPORT INFORMATION
  Report Type: Spontaneous
  Country: ES (occurrence: ES)
  Receive Date: 20200818
  Receipt Date: 20200818
  Transmission Date: 20201103
  Serious: Yes (Hospitalization)
  Sender: FDA-Public Use
  Company Number: ES-TEVA-2020-ES-1814311

PATIENT
  Age: 69 Year
  Sex: Female

DRUGS (3)
  1. GABAPENTINA (2641A) [Suspect]
     Active Substance: GABAPENTIN
     Indication: TRIGEMINAL NEURALGIA
     Dosage: 600?600?300
     Route: 048
     Dates: start: 20190102
  2. ZEBINIX 800 MG COMPRIMIDOS , 30 COMPRIMIDOS [Suspect]
     Active Substance: ESLICARBAZEPINE ACETATE
     Indication: TRIGEMINAL NEURALGIA
     Dosage: 1/2?0?1
     Route: 048
     Dates: start: 20190102, end: 20200418
  3. VIMPAT [Concomitant]
     Active Substance: LACOSAMIDE
     Indication: TRIGEMINAL NEURALGIA
     Dosage: 100 MILLIGRAM DAILY; 1/2?0?1/2
     Route: 048
     Dates: start: 20190820

REACTIONS (1)
  - Inappropriate antidiuretic hormone secretion [Recovered/Resolved]

NARRATIVE: CASE EVENT DATE: 20200418
